FAERS Safety Report 21985195 (Version 5)
Quarter: 2023Q2

REPORT INFORMATION
  Report Type: Report from Study
  Country: ES (occurrence: ES)
  Receive Date: 20230213
  Receipt Date: 20230619
  Transmission Date: 20230722
  Serious: Yes (Hospitalization, Other)
  Sender: FDA-Public Use
  Company Number: ES-TAKEDA-2023TUS014291

PATIENT
  Age: 4 Year
  Sex: Male

DRUGS (16)
  1. TEDUGLUTIDE [Suspect]
     Active Substance: TEDUGLUTIDE
     Indication: Short-bowel syndrome
     Dosage: 0.32 MILLIGRAM, QD
     Route: 042
     Dates: start: 20200513, end: 20210717
  2. TEDUGLUTIDE [Suspect]
     Active Substance: TEDUGLUTIDE
     Indication: Short-bowel syndrome
     Dosage: 0.32 MILLIGRAM, QD
     Route: 042
     Dates: start: 20200513, end: 20210717
  3. TEDUGLUTIDE [Suspect]
     Active Substance: TEDUGLUTIDE
     Indication: Short-bowel syndrome
     Dosage: 0.32 MILLIGRAM, QD
     Route: 042
     Dates: start: 20200513, end: 20210717
  4. TEDUGLUTIDE [Suspect]
     Active Substance: TEDUGLUTIDE
     Indication: Short-bowel syndrome
     Dosage: 0.32 MILLIGRAM, QD
     Route: 042
     Dates: start: 20200513, end: 20210717
  5. TEDUGLUTIDE [Suspect]
     Active Substance: TEDUGLUTIDE
     Dosage: 0.32 MILLIGRAM, QD
     Route: 042
     Dates: start: 20210721
  6. TEDUGLUTIDE [Suspect]
     Active Substance: TEDUGLUTIDE
     Dosage: 0.32 MILLIGRAM, QD
     Route: 042
     Dates: start: 20210721
  7. TEDUGLUTIDE [Suspect]
     Active Substance: TEDUGLUTIDE
     Dosage: 0.32 MILLIGRAM, QD
     Route: 042
     Dates: start: 20210721
  8. TEDUGLUTIDE [Suspect]
     Active Substance: TEDUGLUTIDE
     Dosage: 0.32 MILLIGRAM, QD
     Route: 042
     Dates: start: 20210721
  9. HIBOR [Concomitant]
     Indication: Thrombosis prophylaxis
     Dosage: 1525 INTERNATIONAL UNIT, QD
     Route: 030
     Dates: start: 20211111, end: 20220221
  10. VITAMIN D [Concomitant]
     Active Substance: VITAMIN D NOS
     Indication: Vitamin D deficiency
     Dosage: 400 INTERNATIONAL UNIT, QD
     Route: 048
     Dates: start: 20211111, end: 20220808
  11. SODIUM BICARBONATE [Concomitant]
     Active Substance: SODIUM BICARBONATE
     Indication: Acidosis
     Dosage: 1000 MILLIGRAM, TID
     Route: 048
     Dates: start: 20220221
  12. MICONAZOLE NITRATE [Concomitant]
     Active Substance: MICONAZOLE NITRATE
     Indication: Anorectal discomfort
     Dosage: UNK UNK, BID
     Route: 061
     Dates: start: 20220511, end: 20220521
  13. RITUXIMAB [Concomitant]
     Active Substance: RITUXIMAB
     Indication: Anti-HLA antibody test positive
     Dosage: UNK
     Route: 042
     Dates: start: 20230324, end: 20230331
  14. RITUXIMAB [Concomitant]
     Active Substance: RITUXIMAB
     Dosage: UNK
     Route: 042
     Dates: start: 20230327
  15. HEPARIN [Concomitant]
     Active Substance: HEPARIN SODIUM
     Indication: Thrombosis
     Dosage: UNK
     Route: 042
     Dates: start: 20230220, end: 20230304
  16. AMPHOTERICIN B [Concomitant]
     Active Substance: AMPHOTERICIN B
     Indication: Trichosporon infection
     Dosage: UNK
     Route: 042
     Dates: start: 20230228, end: 20230317

REACTIONS (6)
  - Graft versus host disease in skin [Not Recovered/Not Resolved]
  - Anti-HLA antibody test positive [Recovered/Resolved]
  - Multivisceral transplantation [Not Recovered/Not Resolved]
  - Atrial thrombosis [Recovered/Resolved]
  - Peritonitis [Recovered/Resolved]
  - Growth retardation [Recovered/Resolved]

NARRATIVE: CASE EVENT DATE: 20230118
